FAERS Safety Report 6690676-0 (Version None)
Quarter: 2010Q2

REPORT INFORMATION
  Report Type: 
  Country: None (occurrence: None)
  Receive Date: 20100421
  Receipt Date: 20090923
  Transmission Date: 20101027
  Serious: Yes (Other)
  Sender: FDA-Public Use
  Company Number: US-BRISTOL-MYERS SQUIBB COMPANY-14783500

PATIENT
  Age: 45 Year
  Sex: Female

DRUGS (1)
  1. HYDREA [Suspect]
     Indication: SICKLE CELL ANAEMIA
     Route: 048
     Dates: end: 20040101

REACTIONS (1)
  - DRUG INEFFECTIVE [None]
